FAERS Safety Report 9277374 (Version 1)
Quarter: 2013Q2

REPORT INFORMATION
  Report Type: Spontaneous
  Country: US (occurrence: None)
  Receive Date: 20130503
  Receipt Date: 20130503
  Transmission Date: 20140414
  Serious: Yes (Other)
  Sender: FDA-Public Use
  Company Number: None

PATIENT
  Age: 83 Year
  Sex: Male
  Weight: 90.72 kg

DRUGS (1)
  1. LEXISCAN [Suspect]
     Indication: CORONARY ARTERY DISEASE
     Route: 042
     Dates: start: 20130501

REACTIONS (1)
  - Diarrhoea [None]
